FAERS Safety Report 19080800 (Version 1)
Quarter: 2021Q1

REPORT INFORMATION
  Report Type: Report from Study
  Country: US (occurrence: US)
  Receive Date: 20210331
  Receipt Date: 20210331
  Transmission Date: 20210420
  Serious: Yes (Death)
  Sender: FDA-Public Use
  Company Number: US-TAIHO ONCOLOGY  INC-EU-2020-04348

PATIENT
  Sex: Male
  Weight: 72.64 kg

DRUGS (17)
  1. OXYCONTIN [Concomitant]
     Active Substance: OXYCODONE HYDROCHLORIDE
  2. OMEPRAZOLE. [Concomitant]
     Active Substance: OMEPRAZOLE
  3. PROMETHAZINE [Concomitant]
     Active Substance: PROMETHAZINE HYDROCHLORIDE
  4. LONSURF [Suspect]
     Active Substance: TIPIRACIL HYDROCHLORIDE\TRIFLURIDINE
     Indication: RECTAL CANCER
     Dosage: CURRENT CYCLE UNKNOWN
     Route: 048
     Dates: start: 20200729
  5. FUROSEMIDE. [Concomitant]
     Active Substance: FUROSEMIDE
  6. PHENAZOPYRIDINE. [Concomitant]
     Active Substance: PHENAZOPYRIDINE
  7. CEPHALEXIN. [Concomitant]
     Active Substance: CEPHALEXIN
  8. OXYCODONE [Concomitant]
     Active Substance: OXYCODONE
  9. ENOXAPARIN [Concomitant]
     Active Substance: ENOXAPARIN
  10. STIVARGA [Suspect]
     Active Substance: REGORAFENIB
     Route: 065
  11. MIRTAZAPINE. [Concomitant]
     Active Substance: MIRTAZAPINE
  12. DOXYCYCLINE. [Concomitant]
     Active Substance: DOXYCYCLINE
  13. LONSURF [Suspect]
     Active Substance: TIPIRACIL HYDROCHLORIDE\TRIFLURIDINE
     Indication: COLORECTAL CANCER METASTATIC
     Route: 048
     Dates: start: 20200729
  14. STIVARGA [Suspect]
     Active Substance: REGORAFENIB
     Indication: PRODUCT USED FOR UNKNOWN INDICATION
     Route: 065
  15. PROCHLORPERAZINE. [Concomitant]
     Active Substance: PROCHLORPERAZINE
  16. LACTULOSE. [Concomitant]
     Active Substance: LACTULOSE
  17. HALOPERIDOL. [Concomitant]
     Active Substance: HALOPERIDOL

REACTIONS (2)
  - Disease progression [Unknown]
  - Death [Fatal]
